FAERS Safety Report 5124221-8 (Version None)
Quarter: 2006Q4

REPORT INFORMATION
  Report Type: 
  Country: None (occurrence: None)
  Receive Date: 20061010
  Receipt Date: 20060916
  Transmission Date: 20070319
  Serious: Yes (Hospitalization)
  Sender: FDA-Public Use
  Company Number: FR-BRISTOL-MYERS SQUIBB COMPANY-13515416

PATIENT
  Age: 9 Year
  Sex: Male
  Weight: 22 kg

DRUGS (2)
  1. ABATACEPT [Suspect]
     Indication: ERYTHRODERMIC PSORIASIS
     Route: 042
     Dates: start: 20060529
  2. METHOTREXATE [Suspect]
     Dates: start: 20060529, end: 20060909

REACTIONS (3)
  - HEADACHE [None]
  - PYREXIA [None]
  - SKIN INFECTION [None]
